FAERS Safety Report 6726174-5 (Version None)
Quarter: 2010Q2

REPORT INFORMATION
  Report Type: 
  Country: None (occurrence: None)
  Receive Date: 20100514
  Receipt Date: 20100504
  Transmission Date: 20101027
  Serious: Yes (Life-Threatening)
  Sender: FDA-Public Use
  Company Number: HR-PFIZER INC-2010026508

PATIENT
  Sex: Male
  Weight: 4.2 kg

DRUGS (4)
  1. CISPLATIN [Suspect]
     Indication: HEPATOBLASTOMA
  2. DOXORUBICIN HCL [Suspect]
     Indication: HEPATOBLASTOMA
  3. BLOOD AND RELATED PRODUCTS [Concomitant]
  4. ALBUMIN HUMAN [Concomitant]

REACTIONS (1)
  - PERITONEAL HAEMORRHAGE [None]
